FAERS Safety Report 7237712-0 (Version None)
Quarter: 2011Q1

REPORT INFORMATION
  Report Type: 
  Country: None (occurrence: None)
  Receive Date: 20110121
  Receipt Date: 20110117
  Transmission Date: 20110831
  Serious: Yes (Death)
  Sender: FDA-Public Use
  Company Number: AU-ROCHE-742392

PATIENT
  Sex: Female

DRUGS (3)
  1. HERCEPTIN [Suspect]
     Route: 065
  2. LAPATINIB [Suspect]
     Route: 065
  3. HERCEPTIN [Suspect]
     Route: 065

REACTIONS (4)
  - DIARRHOEA [None]
  - GASTROOESOPHAGEAL REFLUX DISEASE [None]
  - DEATH [None]
  - VOMITING [None]
